FAERS Safety Report 11496459 (Version 1)
Quarter: 2015Q3

REPORT INFORMATION
  Report Type: Spontaneous
  Country: AU (occurrence: AU)
  Receive Date: 20150911
  Receipt Date: 20150911
  Transmission Date: 20151125
  Serious: Yes (Other)
  Sender: FDA-Public Use
  Company Number: AU-BAUSCH-BL-2015-021211

PATIENT
  Sex: Female

DRUGS (2)
  1. VENTOLIN [Suspect]
     Active Substance: ALBUTEROL SULFATE
     Indication: PRODUCT USED FOR UNKNOWN INDICATION
     Route: 065
  2. PREDNISOLONE. [Suspect]
     Active Substance: PREDNISOLONE
     Indication: PRODUCT USED FOR UNKNOWN INDICATION
     Route: 065

REACTIONS (8)
  - Oxygen saturation decreased [Unknown]
  - Condition aggravated [Unknown]
  - Drug ineffective [Unknown]
  - Cough [Unknown]
  - Angina pectoris [Unknown]
  - Chest discomfort [Unknown]
  - Wheezing [Unknown]
  - Drug therapeutic incompatibility [Unknown]
